FAERS Safety Report 12579987 (Version 1)
Quarter: 2016Q3

REPORT INFORMATION
  Report Type: Spontaneous
  Country: DE (occurrence: DE)
  Receive Date: 20160721
  Receipt Date: 20160721
  Transmission Date: 20161109
  Serious: Yes (Hospitalization, Other)
  Sender: FDA-Public Use
  Company Number: DE-AMGEN-DEUSP2016092065

PATIENT
  Sex: Female

DRUGS (8)
  1. VINCRISTINE [Suspect]
     Active Substance: VINCRISTINE
     Indication: B-CELL LYMPHOMA
     Dosage: 3.5 MG, 1 TIMES IN 2 WEEKS
     Route: 042
     Dates: start: 20150409, end: 20150507
  2. DOXORUBICINE                       /00330901/ [Suspect]
     Active Substance: DOXORUBICIN
     Indication: B-CELL LYMPHOMA
     Dosage: 87 MG, 1 TIMS IN 2 WEEKS
     Route: 042
     Dates: start: 20150409, end: 20150624
  3. PREDNISONE. [Suspect]
     Active Substance: PREDNISONE
     Indication: B-CELL LYMPHOMA
     Dosage: 100 MG, D 1-5 IN 14 DAYS
     Route: 048
     Dates: start: 20150407, end: 20150628
  4. PEGFILGRASTIM [Suspect]
     Active Substance: PEGFILGRASTIM
     Indication: B-CELL LYMPHOMA
     Dosage: 6 MG, 1 TIMES IN 2 WEEKS
     Route: 058
     Dates: start: 20150409, end: 20150629
  5. PANTOPRAZOL [Concomitant]
     Active Substance: PANTOPRAZOLE SODIUM
     Indication: PROPHYLAXIS
     Dosage: 40 MG, QD (1 TIMES A DAY (S))
     Route: 048
  6. CYCLOPHOSPHAMIDE. [Suspect]
     Active Substance: CYCLOPHOSPHAMIDE
     Indication: B-CELL LYMPHOMA
     Dosage: 1300 MG, 1 TIME IN 2 WEEKS
     Route: 042
     Dates: start: 20150409, end: 20150624
  7. BISOPROLOL [Concomitant]
     Active Substance: BISOPROLOL
     Indication: CARDIAC FAILURE
     Dosage: 2.5 MG, (1 TIMES A DAY (S))
     Route: 048
  8. RITUXIMAB [Suspect]
     Active Substance: RITUXIMAB
     Indication: B-CELL LYMPHOMA
     Dosage: 630 MG, 1 TIMES IN 2 WEEK(S)
     Route: 048
     Dates: start: 20150407, end: 20151210

REACTIONS (2)
  - Pneumonia aspiration [Recovered/Resolved]
  - Pyrexia [Recovered/Resolved]

NARRATIVE: CASE EVENT DATE: 20160103
